FAERS Safety Report 24652741 (Version 1)
Quarter: 2024Q4

REPORT INFORMATION
  Report Type: Spontaneous
  Country: IT (occurrence: IT)
  Receive Date: 20241122
  Receipt Date: 20241122
  Transmission Date: 20250114
  Serious: Yes (Hospitalization, Other)
  Sender: MERCK
  Company Number: None

PATIENT
  Age: 68 Year
  Sex: Male

DRUGS (6)
  1. PEMBROLIZUMAB [Suspect]
     Active Substance: PEMBROLIZUMAB
     Indication: Lung adenocarcinoma stage IV
     Dosage: 200 MILLIGRAM, CYCLICAL
     Route: 042
     Dates: start: 20240527, end: 20240903
  2. PEMETREXED [Concomitant]
     Active Substance: PEMETREXED
  3. TALOFEN [Concomitant]
     Active Substance: PROMAZINE HYDROCHLORIDE
  4. TRAZODONE HYDROCHLORIDE [Concomitant]
     Active Substance: TRAZODONE HYDROCHLORIDE
  5. OLANZAPINE [Concomitant]
     Active Substance: OLANZAPINE
  6. ACETAMINOPHEN [Concomitant]
     Active Substance: ACETAMINOPHEN

REACTIONS (2)
  - Encephalopathy [Unknown]
  - Dysphagia [Unknown]

NARRATIVE: CASE EVENT DATE: 20240913
